FAERS Safety Report 8918249 (Version 1)
Quarter: 2012Q4

REPORT INFORMATION
  Report Type: 
  Country: US (occurrence: US)
  Receive Date: 20121120
  Receipt Date: 20121120
  Transmission Date: 20130627
  Serious: No
  Sender: FDA-Public Use
  Company Number: US-ASTRAZENECA-2012SE25050

PATIENT
  Age: 81 Year
  Sex: Female
  Weight: 64.9 kg

DRUGS (5)
  1. NEXIUM [Suspect]
     Route: 048
  2. AMLODIPINE [Concomitant]
     Indication: BLOOD PRESSURE ABNORMAL
  3. LIPITOR GENERIC [Concomitant]
     Indication: BLOOD CHOLESTEROL ABNORMAL
  4. FINASTERIDE [Concomitant]
     Indication: PROSTATE CANCER
  5. DOXAZOSIN [Concomitant]

REACTIONS (4)
  - Gastric ulcer [Unknown]
  - Hiatus hernia [Unknown]
  - Pain [Unknown]
  - Weight decreased [Unknown]
